FAERS Safety Report 8776175 (Version 1)
Quarter: 2012Q4

REPORT INFORMATION
  Report Type: 
  Country: GB (occurrence: GB)
  Receive Date: 20120910
  Receipt Date: 20120910
  Transmission Date: 20130627
  Serious: Yes (Other)
  Sender: FDA-Public Use
  Company Number: GB-MYLANLABS-2012S1017927

PATIENT
  Age: 28 Year
  Sex: Female

DRUGS (2)
  1. RISPERIDONE [Suspect]
     Indication: SCHIZOPHRENIA, PARANOID TYPE
     Route: 048
     Dates: start: 2007
  2. DEPIXOL [Suspect]
     Indication: PRODUCT USED FOR UNKNOWN INDICATION
     Dates: start: 2009

REACTIONS (9)
  - Aggression [Unknown]
  - Akathisia [Unknown]
  - Abnormal behaviour [Unknown]
  - Impaired self-care [Unknown]
  - Irritability [Unknown]
  - Social avoidant behaviour [Unknown]
  - Speech disorder [Unknown]
  - Aphasia [Unknown]
  - Tardive dyskinesia [Unknown]
